FAERS Safety Report 13728122 (Version 2)
Quarter: 2017Q3

REPORT INFORMATION
  Report Type: Spontaneous
  Country: FR (occurrence: FR)
  Receive Date: 20170707
  Receipt Date: 20170720
  Transmission Date: 20171127
  Serious: Yes (Other)
  Sender: FDA-Public Use
  Company Number: FR-BAYER-2017-129638

PATIENT
  Age: 34 Year
  Sex: Female

DRUGS (2)
  1. MIRENA [Suspect]
     Active Substance: LEVONORGESTREL
     Indication: CONTRACEPTION
     Dosage: 20 MCG/24HR, CONT
     Route: 015
     Dates: start: 200901, end: 20170614
  2. MIRENA [Suspect]
     Active Substance: LEVONORGESTREL
     Indication: CONTRACEPTION
     Dosage: 20 MCG/24HR, CONT
     Route: 015
     Dates: start: 201004

REACTIONS (38)
  - Hypoaesthesia [Recovered/Resolved]
  - Night sweats [Recovered/Resolved]
  - Headache [Recovered/Resolved]
  - Paraesthesia [Recovered/Resolved]
  - Panic attack [Recovered/Resolved]
  - Mood altered [Recovered/Resolved]
  - Feeling jittery [Recovered/Resolved]
  - Anal fissure [Recovering/Resolving]
  - Nystagmus [Recovering/Resolving]
  - Vaginal ulceration [Recovered/Resolved]
  - Weight increased [Recovered/Resolved]
  - Fatigue [Recovering/Resolving]
  - Vertigo [Recovered/Resolved]
  - Hypoglycaemia [Recovered/Resolved]
  - Libido decreased [Recovered/Resolved]
  - Dyspareunia [Recovered/Resolved]
  - Skin papilloma [Recovered/Resolved]
  - Haemorrhoids [Recovered/Resolved]
  - Urinary tract infection [Recovering/Resolving]
  - Breast pain [Recovered/Resolved]
  - Breast cyst [Recovered/Resolved]
  - Dacryostenosis acquired [Not Recovered/Not Resolved]
  - Acne [Recovered/Resolved]
  - Vaginal infection [Recovering/Resolving]
  - Tinnitus [Recovering/Resolving]
  - Dacryocystitis [Recovering/Resolving]
  - Back pain [Recovered/Resolved]
  - Aphasia [Recovered/Resolved]
  - Phobia of driving [Recovered/Resolved]
  - Hypertrichosis [Recovered/Resolved]
  - Lipoma [Recovering/Resolving]
  - Rectal haemorrhage [Recovering/Resolving]
  - Palpitations [Recovered/Resolved]
  - Tinnitus [Recovered/Resolved]
  - Dyspepsia [Recovered/Resolved]
  - Abdominal pain [Recovered/Resolved]
  - Nausea [Recovered/Resolved]
  - Anxiety [Recovered/Resolved]

NARRATIVE: CASE EVENT DATE: 200908
